FAERS Safety Report 9699111 (Version 1)
Quarter: 2013Q4

REPORT INFORMATION
  Report Type: Spontaneous
  Country: US (occurrence: US)
  Receive Date: 20131120
  Receipt Date: 20131120
  Transmission Date: 20140711
  Serious: Yes (Other)
  Sender: FDA-Public Use
  Company Number: CHPA2013US017336

PATIENT
  Sex: Female

DRUGS (1)
  1. KERI ORIGINAL [Suspect]
     Dosage: UNK, UNK
     Route: 061

REACTIONS (1)
  - Cerebrovascular accident [Not Recovered/Not Resolved]
